FAERS Safety Report 5742634-8 (Version None)
Quarter: 2008Q2

REPORT INFORMATION
  Report Type: 
  Country: None (occurrence: None)
  Receive Date: 20080515
  Receipt Date: 20080515
  Transmission Date: 20081010
  Serious: Yes (Disabling)
  Sender: FDA-Public Use
  Company Number: None

PATIENT
  Sex: Female
  Weight: 80.2867 kg

DRUGS (4)
  1. GADOLINIUM 20CC INJECTED HIGH RESOLUTION DYNAMIC + MORPHOLOGIC CONTRAS [Suspect]
     Indication: NUCLEAR MAGNETIC RESONANCE IMAGING
     Dosage: 20 CC IV
     Route: 042
     Dates: start: 20071227
  2. VYTORIN [Concomitant]
  3. AMLODIPINE [Concomitant]
  4. NEXIUM [Concomitant]

REACTIONS (3)
  - ERYTHEMA [None]
  - MYALGIA [None]
  - SKIN DISORDER [None]
